FAERS Safety Report 15788682 (Version 1)
Quarter: 2019Q1

REPORT INFORMATION
  Report Type: Spontaneous
  Country: AM (occurrence: AM)
  Receive Date: 20190104
  Receipt Date: 20190104
  Transmission Date: 20190417
  Serious: Yes (Death, Hospitalization, Other)
  Sender: FDA-Public Use
  Company Number: AM-009507513-1812USA012361

PATIENT
  Age: 34 Year
  Sex: Male

DRUGS (12)
  1. LAMIVUDINE. [Concomitant]
     Active Substance: LAMIVUDINE
     Indication: ANTIRETROVIRAL THERAPY
     Dosage: UNK
     Dates: start: 20161201
  2. DACLATASVIR. [Suspect]
     Active Substance: DACLATASVIR
     Indication: HEPATITIS C
     Dosage: 90 (UNITS NOT PROVIDED), QD
     Dates: start: 20180703, end: 20180924
  3. PROTIONAMIDE [Suspect]
     Active Substance: PROTIONAMIDE
     Indication: TUBERCULOSIS
     Dosage: 750 (UNITS NOT PROVIDED), QD
     Dates: start: 20180514
  4. CLOFAZIMINE [Suspect]
     Active Substance: CLOFAZIMINE
     Indication: TUBERCULOSIS
     Dosage: 200/100 (UNITS NOT PROVIDED), QD
     Dates: start: 20180514
  5. NEVIRAPINE. [Concomitant]
     Active Substance: NEVIRAPINE
     Indication: ANTIRETROVIRAL THERAPY
     Dosage: UNK
     Dates: start: 20161201
  6. AMOXICILLIN (+) CLAVULANATE POTASSIUM [Suspect]
     Active Substance: AMOXICILLIN\CLAVULANATE POTASSIUM
     Indication: TUBERCULOSIS
     Dosage: 2000 (UNITS NOT PROVIDED), QD
     Dates: start: 20180514, end: 20181003
  7. DELAMANID [Suspect]
     Active Substance: DELAMANID
     Indication: TUBERCULOSIS
     Dosage: 200 (UNITS NOT PROVIDED), QD
     Dates: start: 20180514
  8. ABACAVIR. [Concomitant]
     Active Substance: ABACAVIR
     Indication: ANTIRETROVIRAL THERAPY
     Dosage: UNK
     Dates: start: 20161201
  9. IMIPENEM AND CILASTATIN [Suspect]
     Active Substance: CILASTATIN SODIUM\IMIPENEM
     Indication: TUBERCULOSIS
     Dosage: 2000 (UNITS NOT PROVIDED), QD
     Dates: start: 20180514, end: 20181003
  10. MOXIFLOXACIN. [Suspect]
     Active Substance: MOXIFLOXACIN
     Indication: TUBERCULOSIS
     Dosage: 400 (UNITS NOT PROVIDED), QD
     Dates: start: 20180514
  11. SOFOSBUVIR [Suspect]
     Active Substance: SOFOSBUVIR
     Indication: HEPATITIS C
     Dosage: 400 (UNITS NOT PROVIDED), QD
     Dates: start: 20180703, end: 20180924
  12. PYRIDOXINE [Concomitant]
     Active Substance: PYRIDOXINE

REACTIONS (27)
  - Cachexia [Unknown]
  - Vomiting [Unknown]
  - Odynophagia [Unknown]
  - Iridocyclitis [Unknown]
  - Nausea [Unknown]
  - Gastritis [Not Recovered/Not Resolved]
  - Aspartate aminotransferase increased [Unknown]
  - Chronic hepatitis C [Unknown]
  - Oesophagitis [Not Recovered/Not Resolved]
  - Hepatomegaly [Unknown]
  - Platelet count decreased [Unknown]
  - Eating disorder [Unknown]
  - Blindness [Unknown]
  - Oral candidiasis [Unknown]
  - Alanine aminotransferase increased [Unknown]
  - Paraesthesia [Unknown]
  - Malaise [Unknown]
  - Refusal of treatment by patient [Unknown]
  - Hypoaesthesia [Unknown]
  - Neuropathy peripheral [Unknown]
  - Duodenitis [Not Recovered/Not Resolved]
  - Pain in extremity [Unknown]
  - HIV infection [Fatal]
  - Weight decreased [Unknown]
  - Abdominal pain upper [Unknown]
  - Blood pressure decreased [Unknown]
  - Gamma-glutamyltransferase increased [Unknown]

NARRATIVE: CASE EVENT DATE: 2018
